FAERS Safety Report 16942834 (Version 3)
Quarter: 2019Q4

REPORT INFORMATION
  Report Type: Spontaneous
  Country: HR (occurrence: HR)
  Receive Date: 20191021
  Receipt Date: 20191108
  Transmission Date: 20200122
  Serious: Yes (Life-Threatening, Other)
  Sender: FDA-Public Use
  Company Number: HR-PFIZER INC-2019453653

PATIENT
  Age: 83 Year
  Sex: Female
  Weight: 62 kg

DRUGS (15)
  1. SOLU-MEDROL [Suspect]
     Active Substance: METHYLPREDNISOLONE SODIUM SUCCINATE
     Dosage: 125 MG, UNK
     Route: 041
     Dates: start: 20190918, end: 20190918
  2. SYNOPEN [CHLOROPYRAMINE HYDROCHLORIDE] [Concomitant]
     Dosage: 1 DF, UNK (1 DF= 1 AMPULA IN 100 ML)
     Route: 041
     Dates: start: 20190918, end: 20190918
  3. RANITIDINE. [Concomitant]
     Active Substance: RANITIDINE
     Indication: PREMEDICATION
     Dosage: 1 DF, UNK (1 DF=1 AMPULA IN 100ML)
     Dates: start: 20190911, end: 20190911
  4. GRANISETRON [Concomitant]
     Active Substance: GRANISETRON
     Dosage: 1 DF, UNK (1 DF=1 AMPULA)
     Dates: start: 20190918, end: 20190918
  5. SODIUM CHLORIDE 0.9% [Suspect]
     Active Substance: SODIUM CHLORIDE
     Indication: PREMEDICATION
     Dosage: 350 ML, UNK
     Route: 041
     Dates: start: 20190911, end: 20190911
  6. SODIUM CHLORIDE 0.9% [Suspect]
     Active Substance: SODIUM CHLORIDE
     Dosage: 350 ML, UNK
     Route: 041
     Dates: start: 20190918, end: 20190918
  7. PARACETAMOL [Concomitant]
     Active Substance: ACETAMINOPHEN
     Dosage: 1000 MG, UNK
     Route: 048
     Dates: start: 20190918, end: 20190918
  8. PARACETAMOL [Concomitant]
     Active Substance: ACETAMINOPHEN
     Indication: PREMEDICATION
     Dosage: 1000 MG, UNK
     Route: 048
     Dates: start: 20190911, end: 20190911
  9. SYNOPEN [CHLOROPYRAMINE HYDROCHLORIDE] [Concomitant]
     Indication: PREMEDICATION
     Dosage: 1 DF, UNK (1 DF= 1 AMPULA IN 100 ML)
     Route: 041
     Dates: start: 20190911, end: 20190911
  10. SOLU-MEDROL [Suspect]
     Active Substance: METHYLPREDNISOLONE SODIUM SUCCINATE
     Indication: PREMEDICATION
     Dosage: 125 MG, UNK
     Route: 041
     Dates: start: 20190911, end: 20190911
  11. MISAR [ALPRAZOLAM] [Concomitant]
     Active Substance: ALPRAZOLAM
     Indication: PREMEDICATION
     Dosage: 0.5 MG, UNK
     Route: 048
     Dates: start: 20190918
  12. RANITIDINE. [Concomitant]
     Active Substance: RANITIDINE
     Dosage: 1 DF, UNK (1 DF=1 AMPULA IN 100ML SALINE SOLUTION))
     Route: 065
     Dates: start: 20190918, end: 20190918
  13. GRANISETRON [Concomitant]
     Active Substance: GRANISETRON
     Indication: PREMEDICATION
     Dosage: 1 DF, UNK (1 DF=1 AMPULA)
     Dates: start: 20190911, end: 20190911
  14. GAZYVARO [Suspect]
     Active Substance: OBINUTUZUMAB
     Indication: CHRONIC LYMPHOCYTIC LEUKAEMIA
     Dosage: 100 MG, UNK
     Route: 041
     Dates: start: 20190911, end: 20190911
  15. GAZYVARO [Suspect]
     Active Substance: OBINUTUZUMAB
     Dosage: 900 MG, UNK
     Route: 041
     Dates: start: 20190918, end: 20190918

REACTIONS (8)
  - Asthenia [Recovered/Resolved]
  - Chest discomfort [Recovered/Resolved]
  - Back pain [Recovered/Resolved]
  - Hyperhidrosis [Recovered/Resolved]
  - Acute pulmonary oedema [Recovered/Resolved]
  - Cardiac failure [Recovered/Resolved]
  - Nausea [Recovered/Resolved]
  - Blood pressure increased [Recovered/Resolved]

NARRATIVE: CASE EVENT DATE: 20190911
